FAERS Safety Report 21395880 (Version 1)
Quarter: 2022Q3

REPORT INFORMATION
  Report Type: Spontaneous
  Country: US (occurrence: None)
  Receive Date: 20220928
  Receipt Date: 20220928
  Transmission Date: 20221026
  Serious: Yes (Hospitalization)
  Sender: FDA-Public Use
  Company Number: None

PATIENT
  Age: 68 Year
  Sex: Female

DRUGS (1)
  1. OCTREOTIDE ACETATE [Suspect]
     Active Substance: OCTREOTIDE ACETATE
     Indication: Hypoglycaemia
     Dosage: FREQUENCY : 3 TIMES A DAY;?
     Route: 058
     Dates: start: 202108

REACTIONS (4)
  - Product use issue [None]
  - Therapy interrupted [None]
  - Diabetes mellitus inadequate control [None]
  - Product availability issue [None]

NARRATIVE: CASE EVENT DATE: 20220814
